FAERS Safety Report 6100756-6 (Version None)
Quarter: 2009Q1

REPORT INFORMATION
  Report Type: 
  Country: None (occurrence: None)
  Receive Date: 20090303
  Receipt Date: 20090227
  Transmission Date: 20090719
  Serious: Yes (Hospitalization)
  Sender: FDA-Public Use
  Company Number: JP-B.I. PHARMACEUTICALS,INC./RIDGEFIELD-2009-BP-01461YA

PATIENT
  Age: 69 Year
  Sex: Male
  Weight: 65 kg

DRUGS (5)
  1. TAMSULOSIN HCL [Suspect]
     Indication: BENIGN PROSTATIC HYPERPLASIA
     Dosage: .2MG
     Route: 048
     Dates: start: 20081027
  2. SOLIFENACIN BLINDED [Suspect]
     Indication: HYPERTONIC BLADDER
     Route: 048
     Dates: start: 20081223
  3. OLMETEC (OLMESARTAN MEDOXOMIL) [Concomitant]
     Dates: start: 20080202
  4. CALBLOCK (AZELNIDIPINE) [Concomitant]
  5. EPADEL-S (ETHYL ICOSAPENTATE) [Concomitant]
     Route: 048

REACTIONS (1)
  - LOSS OF CONSCIOUSNESS [None]
